FAERS Safety Report 24053535 (Version 2)
Quarter: 2024Q3

REPORT INFORMATION
  Report Type: Report from Study
  Country: IT (occurrence: IT)
  Receive Date: 20240705
  Receipt Date: 20240809
  Transmission Date: 20241016
  Serious: Yes (Death, Hospitalization, Other)
  Sender: ABBVIE
  Company Number: None

PATIENT
  Age: 78 Year
  Sex: Male

DRUGS (2)
  1. VENETOCLAX [Suspect]
     Active Substance: VENETOCLAX
     Indication: Acute myeloid leukaemia
     Route: 048
     Dates: start: 20240613, end: 20240616
  2. AZACITIDINE [Suspect]
     Active Substance: AZACITIDINE
     Indication: Acute myeloid leukaemia
     Dosage: 75 MG/MQ/DIE
     Route: 058
     Dates: start: 20240611, end: 20240614

REACTIONS (6)
  - Febrile neutropenia [Fatal]
  - Cerebral haemorrhage [Recovering/Resolving]
  - Thrombocytopenia [Not Recovered/Not Resolved]
  - Cerebral ventricle dilatation [Unknown]
  - Enlarged cerebral perivascular spaces [Unknown]
  - Sinus disorder [Unknown]

NARRATIVE: CASE EVENT DATE: 20240614
